FAERS Safety Report 19890600 (Version 1)
Quarter: 2021Q3

REPORT INFORMATION
  Report Type: Spontaneous
  Country: CN (occurrence: CN)
  Receive Date: 20210928
  Receipt Date: 20210928
  Transmission Date: 20211014
  Serious: Yes (Other)
  Sender: FDA-Public Use
  Company Number: CN-ABBVIE-21K-035-4095794-00

PATIENT
  Age: 15 Year
  Sex: Female
  Weight: 63.9 kg

DRUGS (3)
  1. AN XIAN [Concomitant]
     Indication: PRODUCT USED FOR UNKNOWN INDICATION
     Dosage: SMALL DOSE WAS GIVEN AND THE DOSE WAS GRADUALLY INCREASED TO 50 MG DAILY
     Dates: start: 20180620, end: 20180724
  2. DEPAKINE CHRONO [Suspect]
     Active Substance: VALPROATE SODIUM
     Indication: BIPOLAR DISORDER
     Dosage: STARTED FROM A LOW DOSE AND THEN INCREASED GRADUALLY TO 500 MG BID
     Route: 048
     Dates: start: 20180703, end: 20180712
  3. HALOPERIDOL. [Concomitant]
     Active Substance: HALOPERIDOL
     Indication: SEDATION
     Dates: start: 20180705, end: 20180709

REACTIONS (1)
  - Arrhythmia [Recovering/Resolving]

NARRATIVE: CASE EVENT DATE: 20180709
